FAERS Safety Report 12245991 (Version 1)
Quarter: 2016Q2

REPORT INFORMATION
  Report Type: Spontaneous
  Country: CH (occurrence: CH)
  Receive Date: 20160407
  Receipt Date: 20160407
  Transmission Date: 20160815
  Serious: Yes (Hospitalization)
  Sender: FDA-Public Use
  Company Number: CH-LPDUSPRD-20160289

PATIENT
  Age: 58 Year
  Sex: Male
  Weight: 88 kg

DRUGS (4)
  1. BUDENOFALK [Suspect]
     Active Substance: BUDESONIDE
     Dosage: 6 MG 2X/DAY
     Route: 048
     Dates: start: 20150327, end: 20150415
  2. OMEZOL [Suspect]
     Active Substance: OMEPRAZOLE
     Dosage: 20 MG
     Route: 048
     Dates: start: 2012
  3. STRIBILD [Suspect]
     Active Substance: COBICISTAT\ELVITEGRAVIR\EMTRICITABINE\TENOFOVIR DISOPROXIL FUMARATE
     Dosage: DOSE UNKNOWN
     Route: 048
     Dates: start: 20140601
  4. FERINJECT [Suspect]
     Active Substance: FERRIC CARBOXYMALTOSE
     Dosage: DOSE UNKNOWN
     Route: 041
     Dates: start: 20150319

REACTIONS (9)
  - Cushing^s syndrome [Unknown]
  - Mental impairment [Unknown]
  - Agitation [Unknown]
  - Sleep disorder [Unknown]
  - Peripheral swelling [Unknown]
  - Dyspnoea [Unknown]
  - Drug interaction [Unknown]
  - Proctitis haemorrhagic [Unknown]
  - Anal chlamydia infection [Unknown]

NARRATIVE: CASE EVENT DATE: 20150319
